FAERS Safety Report 21527719 (Version 2)
Quarter: 2022Q4

REPORT INFORMATION
  Report Type: Spontaneous
  Country: US (occurrence: US)
  Receive Date: 20221031
  Receipt Date: 20221031
  Transmission Date: 20230113
  Serious: No
  Sender: FDA-Public Use
  Company Number: US-RECKITT BENCKISER HEALTHCARE INT LIMITED-RB-081414-2022

PATIENT
  Age: 61 Year
  Sex: Female

DRUGS (2)
  1. MUCINEX [Suspect]
     Active Substance: GUAIFENESIN
     Indication: Nasopharyngitis
     Dosage: 1 DOSAGE FORM, QD
     Route: 048
     Dates: start: 20220104, end: 20220105
  2. MUCINEX [Suspect]
     Active Substance: GUAIFENESIN
     Indication: Sinus congestion

REACTIONS (2)
  - Expired product administered [Unknown]
  - Drug effective for unapproved indication [Unknown]

NARRATIVE: CASE EVENT DATE: 20220104
